FAERS Safety Report 18219580 (Version 1)
Quarter: 2020Q3

REPORT INFORMATION
  Report Type: Spontaneous
  Country: CA (occurrence: CA)
  Receive Date: 20200901
  Receipt Date: 20200901
  Transmission Date: 20201103
  Serious: Yes (Hospitalization, Other)
  Sender: FDA-Public Use
  Company Number: CA-ASTRAZENECA-2020SF11077

PATIENT
  Age: 62 Year
  Sex: Female
  Weight: 81.3 kg

DRUGS (6)
  1. IBRANCE [Suspect]
     Active Substance: PALBOCICLIB
     Indication: BREAST CANCER METASTATIC
     Dosage: 125 MG, DAILY 21 DAYS ON AND 7 DAYS OFF
     Route: 048
     Dates: start: 20191028
  2. IBRANCE [Suspect]
     Active Substance: PALBOCICLIB
     Indication: BREAST CANCER METASTATIC
     Dosage: 100 MG, DAILY 21 DAYS
     Route: 048
     Dates: start: 20200818
  3. ANASTROZOLE. [Suspect]
     Active Substance: ANASTROZOLE
     Route: 048
  4. IBRANCE [Suspect]
     Active Substance: PALBOCICLIB
     Indication: BREAST CANCER METASTATIC
     Dosage: 125 MG, DAILY 21 DAYS ON AND 7 DAYS OFF
     Route: 048
     Dates: start: 20200331
  5. SYNTHROID [Concomitant]
     Active Substance: LEVOTHYROXINE SODIUM
  6. FASLODEX [Suspect]
     Active Substance: FULVESTRANT
     Indication: BREAST CANCER METASTATIC
     Dosage: 500.0MG UNKNOWN
     Route: 030
     Dates: start: 20191028

REACTIONS (6)
  - Fatigue [Unknown]
  - Diarrhoea [Recovered/Resolved]
  - Neutropenia [Unknown]
  - Arthralgia [Unknown]
  - Joint injury [Unknown]
  - Malignant neoplasm progression [Unknown]
